FAERS Safety Report 4636509-5 (Version None)
Quarter: 2005Q2

REPORT INFORMATION
  Report Type: 
  Country: None (occurrence: None)
  Receive Date: 20050414
  Receipt Date: 20050414
  Transmission Date: 20051028
  Serious: No
  Sender: FDA-Public Use
  Company Number: None

PATIENT
  Age: 34 Year
  Sex: Female
  Weight: 63.5036 kg

DRUGS (1)
  1. BEXTRA [Suspect]
     Indication: MYALGIA
     Dosage: AS NEEDED
     Dates: start: 20031103, end: 20040215

REACTIONS (5)
  - GINGIVAL DISORDER [None]
  - ORAL DISCOMFORT [None]
  - ORAL INTAKE REDUCED [None]
  - PHARYNGOLARYNGEAL PAIN [None]
  - STOMATITIS [None]
